FAERS Safety Report 13716331 (Version 3)
Quarter: 2023Q2

REPORT INFORMATION
  Report Type: Report from Study
  Country: US (occurrence: US)
  Receive Date: 20170705
  Receipt Date: 20230524
  Transmission Date: 20230722
  Serious: Yes (Hospitalization, Other)
  Sender: FDA-Public Use
  Company Number: US-AMGEN-USASL2017099386

PATIENT
  Age: 56 Year
  Sex: Female

DRUGS (2)
  1. ENBREL [Suspect]
     Active Substance: ETANERCEPT
     Indication: Rheumatoid arthritis
     Dosage: 50 MILLIGRAM, QWK
     Route: 065
  2. ENBREL [Suspect]
     Active Substance: ETANERCEPT
     Dosage: UNK, 2 TIMES/WK
     Route: 065

REACTIONS (15)
  - Headache [Unknown]
  - Visual impairment [Unknown]
  - Sciatica [Unknown]
  - Intervertebral disc degeneration [Unknown]
  - Disability [Not Recovered/Not Resolved]
  - Medical procedure [Unknown]
  - Cutaneous lupus erythematosus [Unknown]
  - Diabetes mellitus [Not Recovered/Not Resolved]
  - Myocardial infarction [Unknown]
  - Limb reconstructive surgery [Unknown]
  - SLE arthritis [Unknown]
  - Fall [Unknown]
  - Medical device implantation [Unknown]
  - Pain [Not Recovered/Not Resolved]
  - Memory impairment [Unknown]
